FAERS Safety Report 18307472 (Version 3)
Quarter: 2020Q4

REPORT INFORMATION
  Report Type: Spontaneous
  Country: US (occurrence: US)
  Receive Date: 20200924
  Receipt Date: 20201021
  Transmission Date: 20210113
  Serious: Yes (Other)
  Sender: FDA-Public Use
  Company Number: US-BAYER-2020-200479

PATIENT
  Age: 38 Year
  Sex: Male

DRUGS (4)
  1. KOGENATE FS [Suspect]
     Active Substance: ANTIHEMOPHILIC FACTOR, HUMAN RECOMBINANT
     Dosage: 6000 U
     Route: 042
  2. KOGENATE FS [Suspect]
     Active Substance: ANTIHEMOPHILIC FACTOR, HUMAN RECOMBINANT
     Dosage: 3000 U
     Route: 042
  3. KOGENATE FS [Suspect]
     Active Substance: ANTIHEMOPHILIC FACTOR, HUMAN RECOMBINANT
     Dosage: INFUSED 2 DOSES
     Route: 042
     Dates: start: 20200911
  4. KOGENATE FS [Suspect]
     Active Substance: ANTIHEMOPHILIC FACTOR, HUMAN RECOMBINANT
     Dosage: TREATMENT FOR THE RIGHT SHOULDER AND NECK BLEED USES MULTIPLE INFUSIONS , INCIUDING 3 DOUBLE DOSES
     Route: 042

REACTIONS (3)
  - Haemarthrosis [None]
  - Haemorrhage [Recovered/Resolved]
  - Haemorrhage [None]

NARRATIVE: CASE EVENT DATE: 20200911
